FAERS Safety Report 8061790-2 (Version None)
Quarter: 2012Q1

REPORT INFORMATION
  Report Type: 
  Country: None (occurrence: None)
  Receive Date: 20120123
  Receipt Date: 20120116
  Transmission Date: 20120608
  Serious: Yes (Hospitalization)
  Sender: FDA-Public Use
  Company Number: US-ACCORD-012044

PATIENT
  Age: 63 Year
  Sex: Male

DRUGS (10)
  1. ZOLADEX [Concomitant]
  2. VITAMIN TAB [Concomitant]
  3. ESOMEPRAZOLE [Concomitant]
  4. METFORMIN [Concomitant]
  5. DOCETAXEL [Suspect]
     Indication: PROSTATE CANCER METASTATIC
  6. ACETAMINOPHEN [Concomitant]
  7. CALCIUM CARBONATE [Concomitant]
  8. PROCHLORPERAZINE [Concomitant]
  9. ZOLEDRONIC ACID [Concomitant]
     Dosage: MONTHLY
  10. CASODEX [Concomitant]

REACTIONS (2)
  - THROMBOTIC THROMBOCYTOPENIC PURPURA [None]
  - HAEMOLYTIC URAEMIC SYNDROME [None]
